FAERS Safety Report 5088041-5 (Version None)
Quarter: 2006Q3

REPORT INFORMATION
  Report Type: 
  Country: None (occurrence: None)
  Receive Date: 20060822
  Receipt Date: 20060822
  Transmission Date: 20061208
  Serious: Yes (Hospitalization)
  Sender: FDA-Public Use
  Company Number: None

PATIENT
  Sex: Female
  Weight: 110.55 kg

DRUGS (12)
  1. CISPLATIN [Suspect]
     Dosage: 423 MG
  2. NAVELBINE [Suspect]
     Dosage: 507 MG
  3. ACETAMINOPHEN [Concomitant]
  4. CARISOPRODOL [Concomitant]
  5. FENTANYL [Concomitant]
  6. LINEZOLID [Concomitant]
  7. MORPHINE SULFATE [Concomitant]
  8. MORPHINE SULFATE [Concomitant]
  9. MORPHINE SULFATE [Concomitant]
  10. PHENAZOPYRIDINE [Concomitant]
  11. VANCOMYCIN [Concomitant]
  12. ZOSYN [Concomitant]

REACTIONS (5)
  - BEDRIDDEN [None]
  - FEMALE GENITAL TRACT FISTULA [None]
  - MUSCULAR WEAKNESS [None]
  - ORAL CANDIDIASIS [None]
  - PAIN IN EXTREMITY [None]
